FAERS Safety Report 5144580-X (Version None)
Quarter: 2006Q4

REPORT INFORMATION
  Report Type: 
  Country: None (occurrence: None)
  Receive Date: 20061031
  Receipt Date: 20061018
  Transmission Date: 20070319
  Serious: Yes (Other)
  Sender: FDA-Public Use
  Company Number: 2006100794

PATIENT
  Age: 16 Year
  Sex: Female
  Weight: 99.7913 kg

DRUGS (2)
  1. GEODON [Suspect]
     Indication: SCHIZOPHRENIA
     Dosage: 240 MG
     Dates: start: 20060501, end: 20061001
  2. ABILIFY [Suspect]
     Indication: SCHIZOPHRENIA

REACTIONS (2)
  - DRUG INEFFECTIVE [None]
  - EXTRAPYRAMIDAL DISORDER [None]
